FAERS Safety Report 4390741-7 (Version None)
Quarter: 2004Q3

REPORT INFORMATION
  Report Type: 
  Country: None (occurrence: None)
  Receive Date: 20040706
  Receipt Date: 20040706
  Transmission Date: 20050211
  Serious: Yes (Other)
  Sender: FDA-Public Use
  Company Number: None

PATIENT
  Age: 78 Year
  Sex: Female
  Weight: 68 kg

DRUGS (2)
  1. CLINDAMYCIN [Suspect]
     Indication: PNEUMONIA
     Dosage: IVPB Q 8 HR
     Route: 042
     Dates: start: 20040704
  2. LEVAQUIN [Suspect]
     Dosage: 250 MG IV QD
     Route: 042
     Dates: start: 20040704

REACTIONS (1)
  - RASH [None]
